FAERS Safety Report 17734659 (Version 1)
Quarter: 2020Q2

REPORT INFORMATION
  Report Type: Report from Study
  Country: US (occurrence: US)
  Receive Date: 20200501
  Receipt Date: 20200501
  Transmission Date: 20200714
  Serious: Yes (Hospitalization)
  Sender: FDA-Public Use
  Company Number: NVSC2020US113758

PATIENT
  Age: 49 Year
  Sex: Female

DRUGS (1)
  1. XIIDRA [Suspect]
     Active Substance: LIFITEGRAST
     Indication: DRY EYE
     Dosage: 1 GTT, BID (1DROP EACH EYE)
     Route: 047

REACTIONS (5)
  - Malaise [Unknown]
  - Product dose omission [Unknown]
  - Product communication issue [Unknown]
  - Product use issue [Unknown]
  - Therapeutic product ineffective [Unknown]
